FAERS Safety Report 22175018 (Version 1)
Quarter: 2023Q2

REPORT INFORMATION
  Report Type: Spontaneous
  Country: US (occurrence: US)
  Receive Date: 20230405
  Receipt Date: 20230405
  Transmission Date: 20230722
  Serious: No
  Sender: FDA-Public Use
  Company Number: US-009507513-2304USA000321

PATIENT

DRUGS (4)
  1. CANCIDAS [Suspect]
     Active Substance: CASPOFUNGIN ACETATE
     Indication: Coccidioidomycosis
     Dosage: UNK
  2. CANCIDAS [Suspect]
     Active Substance: CASPOFUNGIN ACETATE
     Indication: Central nervous system fungal infection
  3. VORICONAZOLE [Concomitant]
     Active Substance: VORICONAZOLE
     Indication: Coccidioidomycosis
     Dosage: UNK
  4. VORICONAZOLE [Concomitant]
     Active Substance: VORICONAZOLE
     Indication: Central nervous system fungal infection

REACTIONS (1)
  - Product use in unapproved indication [Unknown]
